FAERS Safety Report 4427405-7 (Version None)
Quarter: 2004Q3

REPORT INFORMATION
  Report Type: 
  Country: None (occurrence: None)
  Receive Date: 20040812
  Receipt Date: 20040730
  Transmission Date: 20050211
  Serious: Yes (Disabling)
  Sender: FDA-Public Use
  Company Number: 2004051586

PATIENT
  Age: 47 Year
  Sex: Female
  Weight: 65.1 kg

DRUGS (6)
  1. SILDENAFIL (SILDENAFIL) [Suspect]
     Indication: PULMONARY HYPERTENSION
     Dosage: 240 MG (80 MG, 3 IN 1 D), ORAL
     Route: 048
     Dates: start: 20030624
  2. WARFARIN SODIUM [Concomitant]
  3. METFORMIN HCL [Concomitant]
  4. ENALAPRIL MALEATE [Concomitant]
  5. SIMVASTATIN [Concomitant]
  6. TROPICAMIDE [Concomitant]

REACTIONS (2)
  - CATARACT CORTICAL [None]
  - CATARACT SUBCAPSULAR [None]
